FAERS Safety Report 7596423-2 (Version None)
Quarter: 2011Q3

REPORT INFORMATION
  Report Type: 
  Country: None (occurrence: None)
  Receive Date: 20110707
  Receipt Date: 20110617
  Transmission Date: 20111222
  Serious: Yes (Hospitalization)
  Sender: FDA-Public Use
  Company Number: FR-ASTRAZENECA-2011SE35334

PATIENT
  Age: 26260 Day
  Sex: Male

DRUGS (12)
  1. KEPPRA [Suspect]
     Route: 048
     Dates: start: 20110404, end: 20110509
  2. NEXIUM [Concomitant]
     Route: 048
  3. RAMIPRIL [Concomitant]
  4. ASPIRIN [Concomitant]
  5. POTASSIUM CHLORIDE [Concomitant]
  6. LASIX [Concomitant]
  7. ACETAMINOPHEN [Concomitant]
     Dosage: AS REQUIRED.
  8. ALDACTONE [Concomitant]
  9. ALFUZOSIN HCL [Concomitant]
  10. BISOPROLOL FUMARATE [Concomitant]
  11. XANAX [Concomitant]
  12. CRESTOR [Suspect]
     Route: 048
     Dates: start: 20101001, end: 20110509

REACTIONS (3)
  - CHOLESTASIS [None]
  - CYTOLYTIC HEPATITIS [None]
  - HEPATIC FAILURE [None]
